FAERS Safety Report 5563509-3 (Version None)
Quarter: 2007Q4

REPORT INFORMATION
  Report Type: 
  Country: None (occurrence: None)
  Receive Date: 20071217
  Receipt Date: 20070606
  Transmission Date: 20080405
  Serious: No
  Sender: FDA-Public Use
  Company Number: US-ASTRAZENECA-2007UW13662

PATIENT
  Age: 70 Year
  Sex: Female
  Weight: 73.9 kg

DRUGS (9)
  1. CRESTOR [Suspect]
     Indication: BLOOD CHOLESTEROL INCREASED
     Route: 048
     Dates: start: 20060101, end: 20060101
  2. HUMIRA [Concomitant]
  3. AMIODARONE HCL [Concomitant]
  4. THYROID MEDICINE [Concomitant]
  5. BLOOD PRESSURE MEDICINE [Concomitant]
  6. PREDNISONE [Concomitant]
  7. METHOTREXATE [Concomitant]
  8. FOLIC ACID [Concomitant]
  9. ALTACE [Concomitant]

REACTIONS (2)
  - ALOPECIA [None]
  - PAIN IN EXTREMITY [None]
